FAERS Safety Report 6045558-4 (Version None)
Quarter: 2009Q1

REPORT INFORMATION
  Report Type: 
  Country: None (occurrence: None)
  Receive Date: 20090121
  Receipt Date: 20090113
  Transmission Date: 20090719
  Serious: Yes (Other)
  Sender: FDA-Public Use
  Company Number: US-AVENTIS-200910410US

PATIENT
  Sex: Female

DRUGS (1)
  1. APIDRA [Suspect]
     Dosage: DOSE: UNK
     Route: 058

REACTIONS (2)
  - KETOSIS [None]
  - PRODUCT QUALITY ISSUE [None]
